FAERS Safety Report 16989138 (Version 1)
Quarter: 2019Q4

REPORT INFORMATION
  Report Type: Spontaneous
  Country: CA (occurrence: CA)
  Receive Date: 20191104
  Receipt Date: 20191104
  Transmission Date: 20200122
  Serious: Yes (Life-Threatening, Hospitalization, Other)
  Sender: FDA-Public Use
  Company Number: CA-PFIZER INC-2019473606

PATIENT
  Age: 50 Year
  Sex: Female

DRUGS (5)
  1. DILAUDID [Concomitant]
     Active Substance: HYDROMORPHONE HYDROCHLORIDE
     Indication: PAIN
     Dosage: 4 MG, 2X/DAY
  2. METHOTREXATE SODIUM. [Suspect]
     Active Substance: METHOTREXATE SODIUM
     Dosage: UNK
  3. ORENCIA [Suspect]
     Active Substance: ABATACEPT
     Indication: RHEUMATOID ARTHRITIS
     Dosage: UNK, WEEKLY
  4. D-TABS [Concomitant]
     Active Substance: CHOLECALCIFEROL
     Dosage: 1 DF, WEEKLY
  5. FOLIC ACID. [Concomitant]
     Active Substance: FOLIC ACID
     Dosage: UNK, WEEKLY

REACTIONS (17)
  - Swollen tongue [Unknown]
  - Thermal burn [Unknown]
  - Haemorrhage [Unknown]
  - Pain [Unknown]
  - Viral infection [Unknown]
  - Scratch [Unknown]
  - Nausea [Unknown]
  - Oral pain [Unknown]
  - Alopecia [Unknown]
  - Platelet count decreased [Unknown]
  - Diarrhoea [Unknown]
  - Insomnia [Unknown]
  - Lip haemorrhage [Unknown]
  - Neutropenia [Unknown]
  - Nasal discomfort [Unknown]
  - Skin laceration [Unknown]
  - Toxicity to various agents [Unknown]
